FAERS Safety Report 5600805-5 (Version None)
Quarter: 2008Q1

REPORT INFORMATION
  Report Type: 
  Country: None (occurrence: None)
  Receive Date: 20080123
  Receipt Date: 20080111
  Transmission Date: 20080703
  Serious: Yes (Hospitalization, Disabling, Other)
  Sender: FDA-Public Use
  Company Number: CL-PFIZER INC-2008004116

PATIENT
  Sex: Female

DRUGS (1)
  1. ELETRIPTAN [Suspect]
     Indication: HEADACHE
     Route: 048
     Dates: start: 20080111, end: 20080111

REACTIONS (8)
  - BLOOD PRESSURE INCREASED [None]
  - DIZZINESS [None]
  - DYSARTHRIA [None]
  - FLUSHING [None]
  - HYPOAESTHESIA [None]
  - SYNCOPE [None]
  - TACHYCARDIA [None]
  - VISION BLURRED [None]
